FAERS Safety Report 18663100 (Version 2)
Quarter: 2021Q2

REPORT INFORMATION
  Report Type: Report from Study
  Country: CA (occurrence: CA)
  Receive Date: 20201224
  Receipt Date: 20210618
  Transmission Date: 20210717
  Serious: Yes (Other)
  Sender: FDA-Public Use
  Company Number: CA-TAKEDA-2018TUS034910

PATIENT
  Age: 51 Year
  Sex: Female

DRUGS (25)
  1. BISOPROLOL [Concomitant]
     Active Substance: BISOPROLOL
     Dosage: 5 MILLIGRAM, QD
  2. OXYNEO [Concomitant]
     Active Substance: OXYCODONE
     Dosage: 10 MILLIGRAM, QD
  3. KETAMINE [Concomitant]
     Active Substance: KETAMINE
     Indication: NEURALGIA
     Dosage: UNK
  4. PERCOCET [Concomitant]
     Active Substance: ACETAMINOPHEN\OXYCODONE HYDROCHLORIDE
     Dosage: UNK
  5. VEDOLIZUMAB [Suspect]
     Active Substance: VEDOLIZUMAB
     Indication: CROHN^S DISEASE
     Dosage: 300 MILLIGRAM
     Route: 042
     Dates: start: 20181019
  6. VEDOLIZUMAB [Suspect]
     Active Substance: VEDOLIZUMAB
     Dosage: 300 MILLIGRAM
     Route: 042
  7. PANTOLOC                           /01263204/ [Concomitant]
     Active Substance: PANTOPRAZOLE SODIUM
     Dosage: 40 MILLIGRAM, QD
  8. OXYNEO [Concomitant]
     Active Substance: OXYCODONE
     Dosage: 15 MILLIGRAM, QD
  9. VEDOLIZUMAB [Suspect]
     Active Substance: VEDOLIZUMAB
     Dosage: 300 MILLIGRAM
     Route: 042
  10. FLONASE                            /00908302/ [Concomitant]
     Active Substance: MOMETASONE FUROATE
     Dosage: UNK
  11. ASA [Concomitant]
     Active Substance: ASPIRIN
     Dosage: 81 MILLIGRAM, QD
  12. FLEXERIL [Concomitant]
     Active Substance: CYCLOBENZAPRINE HYDROCHLORIDE
     Dosage: 10 MILLIGRAM, BID
  13. MICARDIS [Concomitant]
     Active Substance: TELMISARTAN
     Dosage: 40 MILLIGRAM, QD
  14. VEDOLIZUMAB [Suspect]
     Active Substance: VEDOLIZUMAB
     Dosage: 300 MILLIGRAM
     Route: 042
  15. VEDOLIZUMAB [Suspect]
     Active Substance: VEDOLIZUMAB
     Dosage: 300 MILLIGRAM
     Route: 042
  16. VEDOLIZUMAB [Suspect]
     Active Substance: VEDOLIZUMAB
     Dosage: 300 MILLIGRAM
     Route: 042
  17. VEDOLIZUMAB [Suspect]
     Active Substance: VEDOLIZUMAB
     Dosage: 300 MILLIGRAM
     Route: 042
  18. LIDOCAINE. [Concomitant]
     Active Substance: LIDOCAINE
     Indication: NEURALGIA
     Dosage: UNK
  19. OXYBUTYNIN CHLORIDE. [Concomitant]
     Active Substance: OXYBUTYNIN CHLORIDE
     Dosage: UNK UNK, QD
  20. VEDOLIZUMAB [Suspect]
     Active Substance: VEDOLIZUMAB
     Dosage: 300 MILLIGRAM
     Route: 042
  21. LIPITOR [Concomitant]
     Active Substance: ATORVASTATIN CALCIUM
     Dosage: 80 MILLIGRAM, QD
  22. VITAMIN B12 [Concomitant]
     Active Substance: CYANOCOBALAMIN
     Dosage: UNK
  23. AMITRIPTYLINE [Concomitant]
     Active Substance: AMITRIPTYLINE
     Dosage: 10 MILLIGRAM
  24. IMOVANE [Concomitant]
     Active Substance: ZOPICLONE
     Dosage: 7.5 MILLIGRAM, QD
  25. LYRICA [Concomitant]
     Active Substance: PREGABALIN
     Dosage: 150 MILLIGRAM, BID

REACTIONS (6)
  - Abdominal pain upper [Unknown]
  - Abdominal pain [Unknown]
  - Vomiting [Unknown]
  - Malaise [Unknown]
  - Melaena [Unknown]
  - Diarrhoea [Unknown]

NARRATIVE: CASE EVENT DATE: 20190115
